FAERS Safety Report 8124431 (Version 2)
Quarter: 2012Q4

REPORT INFORMATION
  Report Type: 
  Country: US (occurrence: US)
  Receive Date: 20110907
  Receipt Date: 20121119
  Transmission Date: 20130627
  Serious: Yes (Hospitalization)
  Sender: FDA-Public Use
  Company Number: US-GLAXOSMITHKLINE-A0922139A

PATIENT
  Sex: Male

DRUGS (1)
  1. AVANDIA [Suspect]
     Indication: DIABETES MELLITUS
     Dosage: 4MG Unknown
     Route: 048
     Dates: start: 2002, end: 2007

REACTIONS (2)
  - Cardiac disorder [Not Recovered/Not Resolved]
  - Coronary arterial stent insertion [Unknown]
